FAERS Safety Report 6315285-4 (Version None)
Quarter: 2009Q3

REPORT INFORMATION
  Report Type: 
  Country: None (occurrence: None)
  Receive Date: 20090819
  Receipt Date: 20090815
  Transmission Date: 20100115
  Serious: Yes (Other)
  Sender: FDA-Public Use
  Company Number: US-PFIZER INC-2009235522

PATIENT

DRUGS (1)
  1. ZYVOX [Suspect]

REACTIONS (1)
  - CEREBROVASCULAR ACCIDENT [None]
